FAERS Safety Report 6079729-8 (Version None)
Quarter: 2009Q1

REPORT INFORMATION
  Report Type: 
  Country: None (occurrence: None)
  Receive Date: 20090211
  Receipt Date: 20090203
  Transmission Date: 20090719
  Serious: Yes (Disabling)
  Sender: FDA-Public Use
  Company Number: POMP-11163

PATIENT
  Age: 61 Year
  Sex: Female
  Weight: 63 kg

DRUGS (4)
  1. MYOZYME [Suspect]
     Indication: GLYCOGEN STORAGE DISEASE TYPE II
     Dosage: 20 MG/KG, Q2W, INTRAVENOUS
     Route: 042
     Dates: start: 20060709
  2. DEXAMETHASONE SODIUM POSPHATE [Concomitant]
  3. FENISTIL (DIMETINDENE MALEATE) [Concomitant]
  4. ZANTAC 150 [Concomitant]

REACTIONS (4)
  - DRUG SPECIFIC ANTIBODY PRESENT [None]
  - FOOD ALLERGY [None]
  - HYPERVENTILATION [None]
  - PSYCHOSOMATIC DISEASE [None]
